FAERS Safety Report 4467885-4 (Version None)
Quarter: 2004Q4

REPORT INFORMATION
  Report Type: 
  Country: None (occurrence: None)
  Receive Date: 20041004
  Receipt Date: 20041004
  Transmission Date: 20050328
  Serious: No
  Sender: FDA-Public Use
  Company Number: None

PATIENT
  Age: 52 Year
  Sex: Male
  Weight: 80 kg

DRUGS (9)
  1. ATAZANAVIR  150MG  BMS [Suspect]
     Indication: HIV INFECTION
     Dosage: 300MG  DAILY  ORAL
     Route: 048
     Dates: start: 20040921, end: 20040928
  2. TFV/3TC/RTV [Concomitant]
  3. INSULIN [Concomitant]
  4. LISINOPRIL [Concomitant]
  5. GEMFIBROZIL [Concomitant]
  6. NIACIN [Concomitant]
  7. RISPERIDONE [Concomitant]
  8. PERCOCET [Concomitant]
  9. OMEPRAZOLE [Concomitant]

REACTIONS (1)
  - JAUNDICE [None]
